FAERS Safety Report 24025633 (Version 2)
Quarter: 2025Q4

REPORT INFORMATION
  Report Type: Spontaneous
  Country: US (occurrence: US)
  Receive Date: 20240628
  Receipt Date: 20251106
  Transmission Date: 20260118
  Serious: Yes (Death, Other)
  Sender: CHATTEM
  Company Number: US-OPELLA-2024OHG021678

PATIENT
  Sex: Male

DRUGS (1)
  1. GOLD BOND ORIGINAL STRENGTH [Suspect]
     Active Substance: MENTHOL
     Indication: Personal hygiene
     Route: 061

REACTIONS (2)
  - Sarcomatoid mesothelioma [Fatal]
  - Exposure to chemical pollution [Fatal]

NARRATIVE: CASE EVENT DATE: 20230801
